FAERS Safety Report 5128637-5 (Version None)
Quarter: 2006Q4

REPORT INFORMATION
  Report Type: 
  Country: None (occurrence: None)
  Receive Date: 20061011
  Receipt Date: 20061002
  Transmission Date: 20070319
  Serious: Yes (Other)
  Sender: FDA-Public Use
  Company Number: 2006BI014127

PATIENT
  Sex: Female

DRUGS (2)
  1. AVONEX [Suspect]
     Indication: MULTIPLE SCLEROSIS
     Dates: start: 19980423, end: 20030429
  2. AVONEX [Suspect]
     Indication: MULTIPLE SCLEROSIS
     Dates: end: 20060201

REACTIONS (1)
  - MYOCARDIAL INFARCTION [None]
